FAERS Safety Report 6915661-2 (Version None)
Quarter: 2010Q3

REPORT INFORMATION
  Report Type: 
  Country: None (occurrence: None)
  Receive Date: 20100810
  Receipt Date: 20100806
  Transmission Date: 20110219
  Serious: Yes (Hospitalization)
  Sender: FDA-Public Use
  Company Number: US-ASTRAZENECA-2007UW19150

PATIENT
  Age: 615 Month
  Sex: Male
  Weight: 128.4 kg

DRUGS (29)
  1. SEROQUEL [Suspect]
     Indication: ANXIETY
     Dosage: 100-300 MG
     Route: 048
     Dates: start: 20020101, end: 20050101
  2. SEROQUEL [Suspect]
     Indication: BIPOLAR DISORDER
     Dosage: 100-300 MG
     Route: 048
     Dates: start: 20020101, end: 20050101
  3. SEROQUEL [Suspect]
     Route: 048
     Dates: start: 20020920
  4. SEROQUEL [Suspect]
     Route: 048
     Dates: start: 20020920
  5. SEROQUEL [Suspect]
     Route: 048
     Dates: start: 20021022
  6. SEROQUEL [Suspect]
     Route: 048
     Dates: start: 20021022
  7. SEROQUEL [Suspect]
     Dosage: 300-1000 MG (FLUCTUATING)
     Route: 048
     Dates: start: 20021227
  8. SEROQUEL [Suspect]
     Dosage: 300-1000 MG (FLUCTUATING)
     Route: 048
     Dates: start: 20021227
  9. SEROQUEL [Suspect]
     Route: 048
     Dates: start: 20100330
  10. SEROQUEL [Suspect]
     Route: 048
     Dates: start: 20100330
  11. ZYPREXA [Concomitant]
     Dosage: 2.5-5 MG
     Dates: start: 20011108, end: 20020101
  12. KLONOPIN [Concomitant]
     Dosage: 0.5 MG B.I.D, THREE TIMES A DAY
     Route: 048
     Dates: start: 20030321
  13. TRILEPTAL [Concomitant]
     Indication: AFFECTIVE DISORDER
     Dosage: 600-1200 MG DAILY
     Dates: start: 20051121
  14. NAPROXEN [Concomitant]
     Dates: start: 20031219
  15. TRAZODONE [Concomitant]
     Indication: INSOMNIA
     Dosage: 50-200 MG, AT NIGHT, 100 MG TWICE DAILY
     Route: 048
     Dates: start: 20040721
  16. WELLBUTRIN [Concomitant]
     Dates: start: 20020920
  17. WELLBUTRIN [Concomitant]
     Dosage: 150-300 MG A DAY
     Route: 048
     Dates: start: 20030124, end: 20051024
  18. GLYBURIDE [Concomitant]
     Indication: HYPERGLYCAEMIA
     Dates: start: 20040816
  19. GLUCOPHAGE [Concomitant]
     Indication: DIABETES MELLITUS
     Dates: start: 20041202
  20. SINGULAIR [Concomitant]
     Dates: start: 20030519
  21. BENICAR [Concomitant]
     Indication: BLOOD PRESSURE
     Dates: start: 20030603
  22. ENOXAPARIN SODIUM [Concomitant]
     Dosage: 30 MG/0.3 ML
     Dates: start: 20011108
  23. LITHIUM CARBONATE [Concomitant]
     Dates: start: 20011108
  24. LITHIUM CARBONATE [Concomitant]
     Dates: start: 20021022
  25. ACETAMINOPHEN AND HYDROCODONE BITARTRATE [Concomitant]
     Dosage: 5/500 MG
     Dates: start: 20011108
  26. EFFEXOR [Concomitant]
     Dosage: 75 MG THREE TABLETS DAILY
     Dates: start: 20100330
  27. LISINOPRIL [Concomitant]
     Dates: start: 20100330
  28. PRAVASTATIN [Concomitant]
     Dates: start: 20100330
  29. DILTIAZEM [Concomitant]
     Dates: start: 20100330

REACTIONS (4)
  - ALTERED STATE OF CONSCIOUSNESS [None]
  - DIABETES MELLITUS [None]
  - HYPOGLYCAEMIA [None]
  - TYPE 2 DIABETES MELLITUS [None]
